FAERS Safety Report 16345924 (Version 2)
Quarter: 2019Q3

REPORT INFORMATION
  Report Type: Spontaneous
  Country: US (occurrence: US)
  Receive Date: 20190523
  Receipt Date: 20190930
  Transmission Date: 20191004
  Serious: Yes (Hospitalization, Other)
  Sender: FDA-Public Use
  Company Number: US-GLAXOSMITHKLINE-US2019AMR088910

PATIENT
  Age: 60 Year
  Sex: Male

DRUGS (1)
  1. ANORO ELLIPTA [Suspect]
     Active Substance: UMECLIDINIUM BROMIDE\VILANTEROL TRIFENATATE
     Indication: PRODUCT USED FOR UNKNOWN INDICATION
     Dosage: UNK
     Route: 065
     Dates: start: 201804

REACTIONS (6)
  - Fall [Unknown]
  - Visual impairment [Unknown]
  - Dyspnoea [Unknown]
  - Balance disorder [Not Recovered/Not Resolved]
  - Hypoaesthesia [Unknown]
  - Chest injury [Unknown]

NARRATIVE: CASE EVENT DATE: 20190515
